FAERS Safety Report 7507737-6 (Version None)
Quarter: 2011Q2

REPORT INFORMATION
  Report Type: 
  Country: None (occurrence: None)
  Receive Date: 20110527
  Receipt Date: 20110520
  Transmission Date: 20111010
  Serious: No
  Sender: FDA-Public Use
  Company Number: US-BIOGENIDEC-2011BI016985

PATIENT
  Sex: Female

DRUGS (5)
  1. TYSABRI [Suspect]
     Indication: MULTIPLE SCLEROSIS
     Route: 042
     Dates: start: 20080821, end: 20110301
  2. ANTIBIOTICS [Concomitant]
     Indication: INFECTION
  3. ANTIBIOTICS [Concomitant]
     Indication: RASH
  4. TYSABRI [Suspect]
     Route: 042
     Dates: start: 20050109
  5. ANTIBIOTICS [Concomitant]
     Indication: PRODUCT USED FOR UNKNOWN INDICATION

REACTIONS (4)
  - EAR INFECTION [None]
  - RASH [None]
  - BRONCHITIS [None]
  - INFECTION [None]
